FAERS Safety Report 10762921 (Version 1)
Quarter: 2015Q1

REPORT INFORMATION
  Report Type: Spontaneous
  Country: DE (occurrence: DE)
  Receive Date: 20150204
  Receipt Date: 20150204
  Transmission Date: 20150721
  Serious: Yes (Hospitalization, Other)
  Sender: FDA-Public Use
  Company Number: DE-WATSON-2015-01265

PATIENT
  Age: 31 Year
  Sex: Male

DRUGS (1)
  1. DIAZEPAM (UNKNOWN) [Suspect]
     Active Substance: DIAZEPAM
     Indication: PRODUCT USED FOR UNKNOWN INDICATION
     Dosage: 40 MG WATER-DISSOLVED
     Route: 013

REACTIONS (7)
  - Agitation [Unknown]
  - Peripheral ischaemia [Recovered/Resolved]
  - Deep vein thrombosis [Recovered/Resolved]
  - Sympathicotonia [Unknown]
  - Drug abuse [Unknown]
  - Incorrect route of drug administration [Unknown]
  - Drug withdrawal syndrome [Unknown]
